FAERS Safety Report 10663990 (Version 1)
Quarter: 2014Q4

REPORT INFORMATION
  Report Type: Spontaneous
  Country: US (occurrence: None)
  Receive Date: 20141217
  Receipt Date: 20141217
  Transmission Date: 20150529
  Serious: No
  Sender: FDA-Public Use
  Company Number: 14AE048

PATIENT
  Sex: Female

DRUGS (1)
  1. WALGREENS IBUPROFEN TABLETS [Suspect]
     Active Substance: IBUPROFEN
     Indication: HEADACHE
     Dosage: 2 BY MOUTH/TWICE
     Dates: start: 20141204

REACTIONS (1)
  - Vomiting [None]

NARRATIVE: CASE EVENT DATE: 20141204
